FAERS Safety Report 18449041 (Version 1)
Quarter: 2020Q4

REPORT INFORMATION
  Report Type: Spontaneous
  Country: GB (occurrence: GB)
  Receive Date: 20201030
  Receipt Date: 20201030
  Transmission Date: 20210114
  Serious: Yes (Disabling)
  Sender: FDA-Public Use
  Company Number: GB-PFIZER INC-2020418071

PATIENT
  Age: 78 Year
  Sex: Female
  Weight: 63 kg

DRUGS (11)
  1. ROSUVASTATIN. [Concomitant]
     Active Substance: ROSUVASTATIN
     Dosage: 1 DF, 1X/DAY
     Dates: start: 20190625
  2. VENTOLIN [Concomitant]
     Active Substance: ALBUTEROL SULFATE
     Dosage: 2 DF, AS NEEDED
     Route: 055
     Dates: start: 20190625
  3. AMLODIPINE BESILATE [Suspect]
     Active Substance: AMLODIPINE BESYLATE
     Dosage: 5 MG, 1X/DAY
     Dates: start: 20200914
  4. CANDESARTAN. [Concomitant]
     Active Substance: CANDESARTAN
     Dosage: 2 DF, 1X/DAY
     Dates: start: 20200515
  5. DOXAZOSIN [Concomitant]
     Active Substance: DOXAZOSIN MESYLATE
     Dosage: 1 DF, 1X/DAY
     Dates: start: 20201006
  6. SERTRALINE [Concomitant]
     Active Substance: SERTRALINE HYDROCHLORIDE
     Dosage: UNK (USE AS DIRECTED)
     Dates: start: 20200908, end: 20200921
  7. OMEPRAZOLE. [Concomitant]
     Active Substance: OMEPRAZOLE
     Dosage: 1 DF, 1X/DAY
     Dates: start: 20200814
  8. CASSIA SENNA [Concomitant]
     Active Substance: HERBALS\SENNOSIDES
     Dosage: TAKE 1 OR 2 AT NIGHT.
     Dates: start: 20200814
  9. GAVISCON ADVANCE [POTASSIUM BICARBONATE;SODIUM ALGINATE] [Concomitant]
     Dosage: UNK UNK, AS NEEDED (5ML -10ML 4 TIMES A DAY)
     Dates: start: 20190625
  10. LANSOPRAZOLE. [Concomitant]
     Active Substance: LANSOPRAZOLE
     Dosage: 1 DF, DAILY
     Dates: start: 20200604, end: 20200814
  11. SYMBICORT [Concomitant]
     Active Substance: BUDESONIDE\FORMOTEROL FUMARATE DIHYDRATE
     Dosage: UNK, 2X/DAY (ONE TO TWO PUFFS TWICE DAILY)
     Dates: start: 20190812

REACTIONS (4)
  - Hot flush [Recovered/Resolved]
  - Disorientation [Unknown]
  - Dyspnoea [Recovered/Resolved]
  - Fatigue [Recovered/Resolved]

NARRATIVE: CASE EVENT DATE: 2020
